FAERS Safety Report 9181635 (Version 2)
Quarter: 2013Q2

REPORT INFORMATION
  Report Type: Spontaneous
  Country: JP (occurrence: JP)
  Receive Date: 20130322
  Receipt Date: 20130409
  Transmission Date: 20140414
  Serious: Yes (Hospitalization)
  Sender: FDA-Public Use
  Company Number: JP-BRISTOL-MYERS SQUIBB COMPANY-18701680

PATIENT
  Age: 70 Year
  Sex: Female
  Weight: 49 kg

DRUGS (8)
  1. ERBITUX SOLN FOR INF 5MG/ML [Suspect]
     Indication: METASTASES TO LIVER
     Dosage: 19JUN2012-14DEC2012-720MG?04JAN2013-15FEB2013-500MG
     Route: 041
     Dates: start: 20120629, end: 20130215
  2. ERBITUX SOLN FOR INF 5MG/ML [Suspect]
     Indication: COLON CANCER RECURRENT
     Dosage: 19JUN2012-14DEC2012-720MG?04JAN2013-15FEB2013-500MG
     Route: 041
     Dates: start: 20120629, end: 20130215
  3. 5-FLUOROURACIL [Suspect]
     Indication: METASTASES TO LIVER
     Dosage: 3480 MG: 2 IN 1 MONTH: INTRAVENOUS DRIP
     Route: 040
     Dates: start: 20120629, end: 20130215
  4. 5-FLUOROURACIL [Suspect]
     Indication: COLON CANCER RECURRENT
     Dosage: 3480 MG: 2 IN 1 MONTH: INTRAVENOUS DRIP
     Route: 040
     Dates: start: 20120629, end: 20130215
  5. ISOVORIN [Suspect]
     Indication: COLON CANCER RECURRENT
     Route: 041
     Dates: start: 20120629, end: 20130215
  6. ISOVORIN [Suspect]
     Indication: METASTASES TO LIVER
     Route: 041
     Dates: start: 20120629, end: 20130215
  7. OXALIPLATIN [Suspect]
     Indication: COLON CANCER RECURRENT
     Dosage: 29JUN2012-14DEC2012: 120MG?04JAN2013-14FEB2013: 90MG
     Route: 041
     Dates: start: 20120629, end: 20130215
  8. OXALIPLATIN [Suspect]
     Indication: METASTASES TO LIVER
     Dosage: 29JUN2012-14DEC2012: 120MG?04JAN2013-14FEB2013: 90MG
     Route: 041
     Dates: start: 20120629, end: 20130215

REACTIONS (2)
  - Interstitial lung disease [Recovering/Resolving]
  - Skin disorder [Unknown]
